FAERS Safety Report 4530913-1 (Version None)
Quarter: 2004Q4

REPORT INFORMATION
  Report Type: 
  Country: None (occurrence: None)
  Receive Date: 20041215
  Receipt Date: 20041129
  Transmission Date: 20050328
  Serious: Yes (Disabling)
  Sender: FDA-Public Use
  Company Number: DSA_24299_2004

PATIENT
  Age: 70 Year
  Sex: Female
  Weight: 68.9467 kg

DRUGS (10)
  1. CARDIZEM CD [Suspect]
     Indication: HYPERTENSION
     Dosage: 540 MG Q DAY PO
     Route: 048
     Dates: start: 19930101, end: 20030101
  2. CARDIZEM CD [Suspect]
     Indication: HYPERTENSION
     Dosage: 360 MG Q DAY PO
     Route: 048
     Dates: start: 20030101
  3. ANAPROX [Concomitant]
  4. SOMA [Concomitant]
  5. LORTAB [Concomitant]
  6. PREVACID [Concomitant]
  7. TOPROL-XL [Concomitant]
  8. DIOVAN [Concomitant]
  9. VICODIN [Concomitant]
  10. NAPROXEN SODIUM [Suspect]
     Dosage: DF

REACTIONS (22)
  - ASTHENIA [None]
  - BLINDNESS UNILATERAL [None]
  - CATARACT [None]
  - CHEST PAIN [None]
  - CONVULSION [None]
  - DRUG TOXICITY [None]
  - DYSPNOEA [None]
  - ECONOMIC PROBLEM [None]
  - EYE PAIN [None]
  - FATIGUE [None]
  - HEADACHE [None]
  - HEART RATE INCREASED [None]
  - HYPERHIDROSIS [None]
  - HYPERTENSION [None]
  - HYPOAESTHESIA [None]
  - LACRIMATION INCREASED [None]
  - MEDICATION ERROR [None]
  - PHARMACEUTICAL PRODUCT COMPLAINT [None]
  - SELF-MEDICATION [None]
  - SWOLLEN TONGUE [None]
  - THROAT TIGHTNESS [None]
  - VISUAL ACUITY REDUCED [None]
